FAERS Safety Report 4749186-X (Version None)
Quarter: 2005Q3

REPORT INFORMATION
  Report Type: 
  Country: None (occurrence: None)
  Receive Date: 20050817
  Receipt Date: 20050224
  Transmission Date: 20060218
  Serious: Yes (Other)
  Sender: FDA-Public Use
  Company Number: 216869

PATIENT
  Sex: Male

DRUGS (3)
  1. MABTHERA (RITUXIMAB) CONC FOR SOLUTION FOR INFUSION [Suspect]
     Indication: CHRONIC LYMPHOCYTIC LEUKAEMIA
     Dosage: 890  UNK, 1/MONTH, INTRAVENOUS
     Route: 042
     Dates: end: 20041222
  2. FLUDARABINE PHOSPHATE [Suspect]
     Indication: CHRONIC LYMPHOCYTIC LEUKAEMIA
     Dosage: 33.5  UNK,3/MONTH, INTRAVENOUS
     Route: 042
  3. CYCLOPHOSPHAMIDE [Suspect]
     Indication: CHRONIC LYMPHOCYTIC LEUKAEMIA
     Dosage: 335 UNK, 3/MONTH, INTRAVENOUS
     Route: 042
     Dates: end: 20041222

REACTIONS (3)
  - FEBRILE NEUTROPENIA [None]
  - PAROTITIS [None]
  - WHITE BLOOD CELL COUNT DECREASED [None]
